FAERS Safety Report 20698673 (Version 1)
Quarter: 2022Q2

REPORT INFORMATION
  Report Type: Spontaneous
  Country: US (occurrence: US)
  Receive Date: 20220412
  Receipt Date: 20220412
  Transmission Date: 20220721
  Serious: No
  Sender: FDA-Public Use
  Company Number: US-SA-SAC20220408000315

PATIENT
  Sex: Female

DRUGS (19)
  1. KEVZARA [Suspect]
     Active Substance: SARILUMAB
     Indication: Rheumatoid arthritis
     Route: 058
     Dates: start: 20220101
  2. STOOL SOFTENER (DOCUSATE) [Concomitant]
     Active Substance: DOCUSATE
     Dosage: 10MG
  3. ZYRTEC [Concomitant]
     Active Substance: CETIRIZINE HYDROCHLORIDE
  4. SUDAFED 12 HOUR [Concomitant]
     Active Substance: PSEUDOEPHEDRINE HYDROCHLORIDE
     Dosage: 120MG
  5. ONDANSETRON [Concomitant]
     Active Substance: ONDANSETRON
     Dosage: 4MG
  6. SPIRONOLACTONE [Concomitant]
     Active Substance: SPIRONOLACTONE
     Dosage: 4MG
  7. PROAIR HFA [Concomitant]
     Active Substance: ALBUTEROL SULFATE
  8. PRAZOSIN HYDROCHLORIDE [Concomitant]
     Active Substance: PRAZOSIN HYDROCHLORIDE
     Dosage: 025MG
  9. XANAX [Concomitant]
     Active Substance: ALPRAZOLAM
     Dosage: 10MG
  10. ADDERALL [Concomitant]
     Active Substance: AMPHETAMINE ASPARTATE\AMPHETAMINE SULFATE\DEXTROAMPHETAMINE SACCHARATE\DEXTROAMPHETAMINE SULFATE
     Dosage: 025MG
  11. HYDROCODONE [Concomitant]
     Active Substance: HYDROCODONE
     Dosage: 05MG
  12. ESTRADIOL [Concomitant]
     Active Substance: ESTRADIOL
  13. BACLOFEN [Concomitant]
     Active Substance: BACLOFEN
     Dosage: 100MG
  14. OMEPRAZOLE [Concomitant]
     Active Substance: OMEPRAZOLE
     Dosage: 10 MG
  15. VITAMIN D3 [Concomitant]
     Active Substance: CHOLECALCIFEROL
     Dosage: 10MG
  16. VARENICLINE TARTRATE [Concomitant]
     Active Substance: VARENICLINE TARTRATE
  17. PROBIOTIC 10 [BIFIDOBACTERIUM BIFIDUM;BIFIDOBACTERIUM LACTIS;LACTOBACI [Concomitant]
  18. SENNA LAXATIVE [Concomitant]
     Active Substance: SENNOSIDES
     Dosage: UNK MG
  19. KLOR-CON/EF [Concomitant]
     Active Substance: POTASSIUM BICARBONATE

REACTIONS (4)
  - Pain [Unknown]
  - Ulcer [Unknown]
  - Oropharyngeal pain [Unknown]
  - Stress [Unknown]
